FAERS Safety Report 7374939-1 (Version None)
Quarter: 2011Q1

REPORT INFORMATION
  Report Type: 
  Country: None (occurrence: None)
  Receive Date: 20110325
  Receipt Date: 20110323
  Transmission Date: 20110831
  Serious: Yes (Death, Hospitalization)
  Sender: FDA-Public Use
  Company Number: BR-ABBOTT-11P-020-0696949-00

PATIENT
  Sex: Female
  Weight: 51 kg

DRUGS (5)
  1. MESALAMINE [Concomitant]
     Indication: CROHN'S DISEASE
     Route: 048
  2. PREDNISONE [Concomitant]
     Indication: CROHN'S DISEASE
     Route: 048
  3. HUMIRA [Suspect]
     Dosage: INDUCTION DOSE
     Route: 058
  4. HUMIRA [Suspect]
     Indication: CROHN'S DISEASE
     Dosage: INDUCTION DOSE
     Route: 058
     Dates: start: 20101026, end: 20101026
  5. HUMIRA [Suspect]
     Route: 058
     Dates: start: 20101222

REACTIONS (4)
  - CROHN'S DISEASE [None]
  - RESPIRATORY ARREST [None]
  - HEADACHE [None]
  - PYREXIA [None]
